FAERS Safety Report 6586797-3 (Version None)
Quarter: 2010Q1

REPORT INFORMATION
  Report Type: 
  Country: None (occurrence: None)
  Receive Date: 20100204
  Receipt Date: 20100126
  Transmission Date: 20100710
  Serious: Yes (Life-Threatening, Other)
  Sender: FDA-Public Use
  Company Number: 008104

PATIENT
  Age: 68 Year
  Sex: Male

DRUGS (2)
  1. BUSULFEX [Suspect]
     Indication: STEM CELL TRANSPLANT
     Dosage: 13MG, DAILY DOSE, INTRAVENOUS
     Route: 042
     Dates: start: 20091111, end: 20091114
  2. CYTOXAN [Concomitant]

REACTIONS (9)
  - ATRIAL FIBRILLATION [None]
  - BONE MARROW TRANSPLANT [None]
  - CHEST PAIN [None]
  - HYPERHIDROSIS [None]
  - HYPOTENSION [None]
  - HYPOXIA [None]
  - PULMONARY OEDEMA [None]
  - RENAL FAILURE ACUTE [None]
  - SHOCK [None]
